FAERS Safety Report 13893431 (Version 1)
Quarter: 2017Q3

REPORT INFORMATION
  Report Type: Spontaneous
  Country: US (occurrence: US)
  Receive Date: 20170822
  Receipt Date: 20170822
  Transmission Date: 20171127
  Serious: No
  Sender: FDA-Public Use
  Company Number: US-ENDO PHARMACEUTICALS INC-2017-003143

PATIENT
  Age: 47 Year
  Sex: Male
  Weight: 83.44 kg

DRUGS (2)
  1. TESTOPEL [Suspect]
     Active Substance: TESTOSTERONE
     Indication: BLOOD TESTOSTERONE DECREASED
     Dosage: 75 MG, 6 PELLETS (450 MG)
     Route: 058
     Dates: start: 20170127
  2. TESTOPEL [Suspect]
     Active Substance: TESTOSTERONE
     Dosage: 75 MG, 6 PELLETS (450 MG)
     Route: 058
     Dates: start: 20170425

REACTIONS (3)
  - Blood follicle stimulating hormone decreased [Unknown]
  - Blood luteinising hormone decreased [Unknown]
  - Sexual dysfunction [Unknown]

NARRATIVE: CASE EVENT DATE: 201704
